FAERS Safety Report 16072629 (Version 1)
Quarter: 2019Q2

REPORT INFORMATION
  Report Type: Spontaneous
  Country: US (occurrence: US)
  Receive Date: 20190314
  Receipt Date: 20190314
  Transmission Date: 20190711
  Serious: Yes (Disabling, Other)
  Sender: FDA-Public Use
  Company Number: None

PATIENT
  Age: 28 Year
  Sex: Female
  Weight: 63 kg

DRUGS (11)
  1. METHOTREXATE. [Suspect]
     Active Substance: METHOTREXATE
     Indication: ANKYLOSING SPONDYLITIS
     Dosage: ?          QUANTITY:5 TABLET(S);OTHER FREQUENCY:WEEKLY;?
     Route: 048
     Dates: start: 20090101
  2. VITAMIN D NOS [Concomitant]
     Active Substance: VITAMIN D NOS
  3. SIMPONI [Concomitant]
     Active Substance: GOLIMUMAB
  4. MULTIVITAMIN [Concomitant]
     Active Substance: VITAMINS
  5. METHOTREXATE. [Suspect]
     Active Substance: METHOTREXATE
     Indication: CROHN^S DISEASE
     Dosage: ?          QUANTITY:5 TABLET(S);OTHER FREQUENCY:WEEKLY;?
     Route: 048
     Dates: start: 20090101
  6. VITAMIN C [Concomitant]
     Active Substance: ASCORBIC ACID
  7. BIRTH CONTROL [Concomitant]
     Active Substance: UNSPECIFIED INGREDIENT
  8. LEVOTHYROXINE. [Concomitant]
     Active Substance: LEVOTHYROXINE
  9. CALCIUM [Concomitant]
     Active Substance: CALCIUM
  10. LEUCOVORIN. [Concomitant]
     Active Substance: LEUCOVORIN
  11. CELEBREX [Concomitant]
     Active Substance: CELECOXIB

REACTIONS (2)
  - Hepatic enzyme increased [None]
  - Foot fracture [None]

NARRATIVE: CASE EVENT DATE: 20181001
